FAERS Safety Report 6442418-1 (Version None)
Quarter: 2009Q4

REPORT INFORMATION
  Report Type: 
  Country: None (occurrence: None)
  Receive Date: 20091112
  Receipt Date: 20091029
  Transmission Date: 20100525
  Serious: Yes (Other)
  Sender: FDA-Public Use
  Company Number: DSA_41938_2009

PATIENT
  Age: 65 Year
  Sex: Male

DRUGS (2)
  1. BUPROPION HYDROCHLORIDE [Suspect]
     Indication: DEPRESSION
     Dosage: 300 MG IN THE MORNING ORAL
     Route: 048
     Dates: start: 20090901
  2. BETA-BLOCKER UNKNOWN [Suspect]
     Indication: DRUG USE FOR UNKNOWN INDICATION
     Dosage: DF

REACTIONS (3)
  - FACIAL BONES FRACTURE [None]
  - FALL [None]
  - SYNCOPE [None]
